FAERS Safety Report 16184524 (Version 1)
Quarter: 2019Q2

REPORT INFORMATION
  Report Type: Spontaneous
  Country: US (occurrence: US)
  Receive Date: 20190410
  Receipt Date: 20190410
  Transmission Date: 20190711
  Serious: Yes (Hospitalization)
  Sender: FDA-Public Use
  Company Number: None

PATIENT
  Sex: Male

DRUGS (9)
  1. FOLIC ACID TAB 1MG [Concomitant]
  2. DAILY TAB VITAMIN [Concomitant]
  3. METHOTREXATE TAB 2.5MG [Concomitant]
     Active Substance: METHOTREXATE
  4. TOPAMAX TAB 25MG [Concomitant]
  5. FISH OIL CAP 1000MG [Concomitant]
  6. LIPITOR TAB 20MG [Concomitant]
  7. HUMIRA [Suspect]
     Active Substance: ADALIMUMAB
     Indication: RHEUMATOID ARTHRITIS
     Dosage: ?          OTHER FREQUENCY:EVERY OTHER WEEK;?
     Route: 058
     Dates: start: 20100217
  8. SPIRIVA CAP HANDIHLR [Concomitant]
  9. TYLENOL TAB 325MG [Concomitant]

REACTIONS (1)
  - Pneumonia [None]
